FAERS Safety Report 11443131 (Version 2)
Quarter: 2016Q3

REPORT INFORMATION
  Report Type: Spontaneous
  Country: US (occurrence: US)
  Receive Date: 20150901
  Receipt Date: 20160803
  Transmission Date: 20161109
  Serious: Yes (Other)
  Sender: FDA-Public Use
  Company Number: US-BAYER-2015-403432

PATIENT
  Sex: Male
  Weight: 255 kg

DRUGS (6)
  1. AMITRIPTYLINE [Concomitant]
     Active Substance: AMITRIPTYLINE
  2. CIPROFLOXACIN. [Suspect]
     Active Substance: CIPROFLOXACIN
     Dosage: UNK
     Dates: start: 201104
  3. CIPRO [Suspect]
     Active Substance: CIPROFLOXACIN HYDROCHLORIDE
     Dosage: 500 MG, UNK
     Dates: start: 201104, end: 201104
  4. AMPICILLIN [Concomitant]
     Active Substance: AMPICILLIN
  5. AMOXICILLIN. [Concomitant]
     Active Substance: AMOXICILLIN
  6. LYRICA [Concomitant]
     Active Substance: PREGABALIN

REACTIONS (11)
  - Toxic neuropathy [Not Recovered/Not Resolved]
  - Injury [Not Recovered/Not Resolved]
  - Hypoaesthesia [None]
  - Paraesthesia [None]
  - Neuropathy peripheral [Not Recovered/Not Resolved]
  - Pain [None]
  - Anxiety [None]
  - Emotional distress [Not Recovered/Not Resolved]
  - Pain [Not Recovered/Not Resolved]
  - Injury [None]
  - Asthenia [None]
